FAERS Safety Report 9806531 (Version 1)
Quarter: 2014Q1

REPORT INFORMATION
  Report Type: Spontaneous
  Country: ES (occurrence: ES)
  Receive Date: 20140109
  Receipt Date: 20140109
  Transmission Date: 20141002
  Serious: Yes (Other)
  Sender: FDA-Public Use
  Company Number: PHHY2014ES001950

PATIENT
  Age: 54 Year
  Sex: Female

DRUGS (6)
  1. TRILEPTAL [Suspect]
     Indication: PARTIAL SEIZURES
     Dosage: UNK
     Route: 048
     Dates: start: 20130125, end: 20131107
  2. EUTIROX [Concomitant]
     Dosage: UNK
     Route: 048
  3. PARACETAMOL [Concomitant]
     Dosage: UNK
     Route: 048
  4. SINTROM [Concomitant]
     Dosage: UNK
     Route: 048
  5. SOTAPOR [Concomitant]
     Dosage: UNK
     Route: 048
  6. ZARATOR//ATORVASTATIN [Concomitant]
     Dosage: UNK
     Route: 048

REACTIONS (4)
  - Hypochloraemia [Recovered/Resolved]
  - Dizziness [Recovered/Resolved]
  - Hyponatraemia [Recovered/Resolved]
  - Asthenia [Recovered/Resolved]
